FAERS Safety Report 13765263 (Version 1)
Quarter: 2017Q3

REPORT INFORMATION
  Report Type: Spontaneous
  Country: US (occurrence: US)
  Receive Date: 20170718
  Receipt Date: 20170718
  Transmission Date: 20171127
  Serious: Yes (Other)
  Sender: FDA-Public Use
  Company Number: US-LANNETT COMPANY, INC.-US-2017LAN000922

PATIENT
  Age: 84 Year
  Sex: Female

DRUGS (5)
  1. ONDANSETRON [Suspect]
     Active Substance: ONDANSETRON
     Indication: HYPERTENSION
     Dosage: UNK
     Route: 065
  2. TRAMADOL. [Suspect]
     Active Substance: TRAMADOL
     Indication: SHOULDER OPERATION
     Dosage: UNK
     Route: 065
  3. BUPROPION. [Suspect]
     Active Substance: BUPROPION
     Indication: ANXIETY
     Dosage: UNK
     Route: 065
  4. ONDANSETRON [Suspect]
     Active Substance: ONDANSETRON
     Indication: VOMITING
  5. TRAZODONE [Suspect]
     Active Substance: TRAZODONE HYDROCHLORIDE
     Indication: INSOMNIA
     Dosage: UNK

REACTIONS (1)
  - Serotonin syndrome [Recovered/Resolved]
